FAERS Safety Report 6599896-7 (Version None)
Quarter: 2010Q1

REPORT INFORMATION
  Report Type: 
  Country: None (occurrence: None)
  Receive Date: 20100217
  Receipt Date: 20100209
  Transmission Date: 20100710
  Serious: Yes (Death, Hospitalization)
  Sender: FDA-Public Use
  Company Number: 2009JP007831

PATIENT
  Age: 92 Year
  Sex: Female
  Weight: 50 kg

DRUGS (6)
  1. VESICARE [Suspect]
     Indication: HYPERTONIC BLADDER
     Dosage: 5 MG, UID/QID, ORAL
     Route: 048
     Dates: start: 20091211, end: 20091221
  2. DIOVAN [Concomitant]
  3. AMLODIPINE [Concomitant]
  4. FERROMIA (FERROUS SODIUM CITRATE) [Concomitant]
  5. ASPIRIN [Concomitant]
  6. NIZATIDINE (NIZATIDINE) CAPSULE [Concomitant]

REACTIONS (6)
  - ATRIAL FIBRILLATION [None]
  - BRADYCARDIA [None]
  - CAROTID ARTERY OCCLUSION [None]
  - CEREBRAL ARTERY EMBOLISM [None]
  - COMA [None]
  - WHEEZING [None]
